FAERS Safety Report 7265385-X (Version None)
Quarter: 2011Q1

REPORT INFORMATION
  Report Type: 
  Country: None (occurrence: None)
  Receive Date: 20110131
  Receipt Date: 20110126
  Transmission Date: 20110831
  Serious: Yes (Other)
  Sender: FDA-Public Use
  Company Number: US-ABBOTT-11P-163-0700937-00

PATIENT
  Sex: Male
  Weight: 63.56 kg

DRUGS (4)
  1. FOSAMAX [Concomitant]
     Indication: OSTEOPOROSIS
  2. HUMIRA [Suspect]
     Dates: start: 20100401, end: 20100501
  3. UNKNOWN PAIN PILL [Concomitant]
     Indication: PRODUCT USED FOR UNKNOWN INDICATION
  4. HUMIRA [Suspect]
     Indication: PSORIATIC ARTHROPATHY
     Dates: start: 20070101, end: 20070101

REACTIONS (4)
  - BONE DENSITY DECREASED [None]
  - SWELLING FACE [None]
  - ORAL INFECTION [None]
  - JOINT INJURY [None]
